FAERS Safety Report 18988273 (Version 1)
Quarter: 2021Q1

REPORT INFORMATION
  Report Type: Spontaneous
  Country: BG (occurrence: BG)
  Receive Date: 20210309
  Receipt Date: 20210309
  Transmission Date: 20210420
  Serious: Yes (Death, Hospitalization)
  Sender: FDA-Public Use
  Company Number: NVSC2021BG054120

PATIENT
  Age: 74 Year
  Sex: Male

DRUGS (1)
  1. ENTRESTO [Suspect]
     Active Substance: SACUBITRIL\VALSARTAN
     Indication: CARDIAC FAILURE CHRONIC
     Dosage: 50 MG, BID  (24/26 MG)
     Route: 048
     Dates: start: 202003

REACTIONS (4)
  - Pyrexia [Fatal]
  - Cardiac failure acute [Fatal]
  - Respiratory failure [Fatal]
  - Confusional state [Fatal]

NARRATIVE: CASE EVENT DATE: 202102
